FAERS Safety Report 24581030 (Version 1)
Quarter: 2024Q4

REPORT INFORMATION
  Report Type: Spontaneous
  Country: US (occurrence: None)
  Receive Date: 20241104
  Receipt Date: 20241104
  Transmission Date: 20250115
  Serious: Yes (Other)
  Sender: Public
  Company Number: None

PATIENT
  Age: 38 Year
  Sex: Male
  Weight: 83.91 kg

DRUGS (4)
  1. HUMALOG [Suspect]
     Active Substance: INSULIN LISPRO
  2. LYUMJEV [Suspect]
     Active Substance: INSULIN LISPRO-AABC
  3. ENALAPRIL [Concomitant]
     Active Substance: ENALAPRIL
  4. TAMSULOSIN [Concomitant]
     Active Substance: TAMSULOSIN

REACTIONS (3)
  - Device malfunction [None]
  - Incorrect dose administered by device [None]
  - Blood glucose decreased [None]

NARRATIVE: CASE EVENT DATE: 20240615
